FAERS Safety Report 8214704-6 (Version None)
Quarter: 2012Q1

REPORT INFORMATION
  Report Type: 
  Country: None (occurrence: None)
  Receive Date: 20120229
  Receipt Date: 20110803
  Transmission Date: 20120608
  Serious: Yes (Hospitalization)
  Sender: FDA-Public Use
  Company Number: PHEH2011US00562

PATIENT
  Age: 64 Year
  Sex: Female

DRUGS (1)
  1. NEORAL [Suspect]
     Indication: COMPLICATIONS OF TRANSPLANTED KIDNEY
     Dosage: 75 MG, BID, ORAL
     Route: 048
     Dates: start: 20110304

REACTIONS (1)
  - ABDOMINAL INFECTION [None]
